FAERS Safety Report 10249884 (Version 1)
Quarter: 2014Q2

REPORT INFORMATION
  Report Type: Spontaneous
  Country: JP (occurrence: JP)
  Receive Date: 20140620
  Receipt Date: 20140620
  Transmission Date: 20141212
  Serious: Yes (Hospitalization, Other)
  Sender: FDA-Public Use
  Company Number: JP-TAKEDA-2014TJP007577

PATIENT
  Age: 9 Decade
  Sex: Male

DRUGS (4)
  1. TAKEPRON INTRAVENOUS 30MG. [Suspect]
     Indication: GASTRIC ULCER HAEMORRHAGE
     Dosage: 60 MG, UNK
     Route: 041
     Dates: start: 20140607, end: 20140611
  2. ACTOS [Concomitant]
     Indication: DIABETES MELLITUS
     Route: 048
  3. METGLUCO [Concomitant]
     Indication: DIABETES MELLITUS
     Route: 048
  4. NOVORAPID [Concomitant]
     Indication: DIABETES MELLITUS
     Route: 050

REACTIONS (1)
  - Pancreatitis acute [Unknown]
